FAERS Safety Report 7594869-X (Version None)
Quarter: 2011Q2

REPORT INFORMATION
  Report Type: 
  Country: None (occurrence: None)
  Receive Date: 20110615
  Receipt Date: 20100922
  Transmission Date: 20111010
  Serious: Yes (Hospitalization)
  Sender: FDA-Public Use
  Company Number: WAES 1009USA04680

PATIENT
  Sex: Male

DRUGS (2)
  1. HYDROCHLOROTHIAZIDE [Concomitant]
  2. COZAAR [Suspect]
     Indication: HYPERTENSION
     Dosage: PO
     Route: 048

REACTIONS (1)
  - THROMBOCYTOPENIA [None]
